FAERS Safety Report 7416950-8 (Version None)
Quarter: 2011Q2

REPORT INFORMATION
  Report Type: 
  Country: None (occurrence: None)
  Receive Date: 20110415
  Receipt Date: 20110410
  Transmission Date: 20111010
  Serious: Yes (Other)
  Sender: FDA-Public Use
  Company Number: CH-ABBOTT-11P-151-0717937-00

PATIENT
  Sex: Female

DRUGS (3)
  1. HUMIRA [Suspect]
     Indication: CROHN'S DISEASE
     Dosage: ONCE
     Dates: start: 20110207, end: 20110207
  2. HUMIRA [Suspect]
     Dosage: ONCE
  3. HUMIRA [Suspect]

REACTIONS (6)
  - HEADACHE [None]
  - FACE OEDEMA [None]
  - VISUAL IMPAIRMENT [None]
  - HEARING IMPAIRED [None]
  - MOUTH ULCERATION [None]
  - SKIN DISORDER [None]
